FAERS Safety Report 19780860 (Version 1)
Quarter: 2021Q3

REPORT INFORMATION
  Report Type: Spontaneous
  Country: US (occurrence: US)
  Receive Date: 20210903
  Receipt Date: 20210903
  Transmission Date: 20211014
  Serious: No
  Sender: FDA-Public Use
  Company Number: US-PURDUE-USA-2020-0167723

PATIENT
  Age: 54 Year
  Sex: Female
  Weight: 81.64 kg

DRUGS (1)
  1. OXYCODONE/ ACETAMINOPHEN TABLETS [Suspect]
     Active Substance: ACETAMINOPHEN\OXYCODONE HYDROCHLORIDE
     Indication: BACK PAIN
     Dosage: 10/325 MG, Q4? 6H PRN
     Route: 048
     Dates: start: 20200905

REACTIONS (10)
  - Quality of life decreased [Not Recovered/Not Resolved]
  - General physical health deterioration [Unknown]
  - Pruritus [Not Recovered/Not Resolved]
  - Social avoidant behaviour [Not Recovered/Not Resolved]
  - Nausea [Not Recovered/Not Resolved]
  - Illness [Not Recovered/Not Resolved]
  - Wrong technique in product usage process [Not Recovered/Not Resolved]
  - Dizziness [Not Recovered/Not Resolved]
  - Personality change [Not Recovered/Not Resolved]
  - Sedation [Not Recovered/Not Resolved]

NARRATIVE: CASE EVENT DATE: 202009
